FAERS Safety Report 6043481-2 (Version None)
Quarter: 2009Q1

REPORT INFORMATION
  Report Type: 
  Country: None (occurrence: None)
  Receive Date: 20090120
  Receipt Date: 20090114
  Transmission Date: 20090719
  Serious: Yes (Other)
  Sender: FDA-Public Use
  Company Number: GB-TEVA-183870ISR

PATIENT
  Age: 49 Year
  Sex: Female

DRUGS (6)
  1. CARBOPLATIN [Suspect]
     Indication: MALIGNANT HYDATIDIFORM MOLE
  2. CISPLATIN [Suspect]
     Indication: MALIGNANT HYDATIDIFORM MOLE
  3. ETOPOSIDE [Suspect]
     Indication: MALIGNANT HYDATIDIFORM MOLE
  4. PACLITAXEL [Suspect]
     Indication: MALIGNANT HYDATIDIFORM MOLE
  5. ANAESTHETICS [Suspect]
  6. GEMCITABINE [Suspect]
     Indication: MALIGNANT HYDATIDIFORM MOLE

REACTIONS (2)
  - DRUG INTERACTION [None]
  - REVERSIBLE POSTERIOR LEUKOENCEPHALOPATHY SYNDROME [None]
